FAERS Safety Report 7213995-8 (Version None)
Quarter: 2011Q1

REPORT INFORMATION
  Report Type: 
  Country: None (occurrence: None)
  Receive Date: 20110106
  Receipt Date: 20101228
  Transmission Date: 20110831
  Serious: Yes (Other)
  Sender: FDA-Public Use
  Company Number: US-BAYER-2010-008774

PATIENT
  Sex: Female
  Weight: 107 kg

DRUGS (5)
  1. BLOOD PRESSURE MEDICATION (NOS) [Concomitant]
  2. ASPIRIN [Suspect]
     Dosage: 325 MG, ONCE
     Dates: start: 20101219, end: 20101201
  3. POTASSIUM [Concomitant]
  4. ASPIRIN [Suspect]
     Dosage: 325 MG, QD
     Dates: start: 20100401, end: 20101214
  5. LIPITOR [Concomitant]

REACTIONS (2)
  - VAGINAL HAEMORRHAGE [None]
  - HAEMORRHAGE URINARY TRACT [None]
